FAERS Safety Report 8321068-6 (Version None)
Quarter: 2012Q2

REPORT INFORMATION
  Report Type: 
  Country: None (occurrence: None)
  Receive Date: 20120430
  Receipt Date: 20120426
  Transmission Date: 20120825
  Serious: Yes (Death)
  Sender: FDA-Public Use
  Company Number: PHEH2012US005713

PATIENT
  Sex: Female

DRUGS (4)
  1. BACLOFEN [Concomitant]
     Dosage: 10 MG
  2. AMANTADINE HCL [Concomitant]
     Dosage: 100 MG
  3. EXTAVIA [Suspect]
     Dosage: 0.3 MG, QOD
     Route: 058
  4. ZANAFLEX [Concomitant]
     Dosage: 4 MG, UNK

REACTIONS (1)
  - DEATH [None]
